FAERS Safety Report 12957377 (Version 6)
Quarter: 2019Q2

REPORT INFORMATION
  Report Type: Spontaneous
  Country: US (occurrence: US)
  Receive Date: 20161118
  Receipt Date: 20190621
  Transmission Date: 20190711
  Serious: Yes (Other)
  Sender: FDA-Public Use
  Company Number: US-PFIZER INC-2015026668

PATIENT
  Age: 73 Year
  Sex: Female
  Weight: 76.64 kg

DRUGS (15)
  1. SPIRONOLACTONE. [Concomitant]
     Active Substance: SPIRONOLACTONE
     Indication: LEFT VENTRICULAR FAILURE
     Dosage: 25 MG, AS NEEDED (TWO TIMES DAILY IF NEEDED)
     Dates: start: 201501
  2. CONOFITE [Concomitant]
     Dosage: UNK
  3. LYRICA [Suspect]
     Active Substance: PREGABALIN
     Indication: NEUROPATHY PERIPHERAL
     Dosage: 100 MG, 3X/DAY
     Route: 048
     Dates: end: 20161101
  4. VIIBRYD [Concomitant]
     Active Substance: VILAZODONE HYDROCHLORIDE
     Indication: DEPRESSION
     Dosage: 40 MG, DAILY
     Route: 048
  5. PANTOPRAZOLE [Concomitant]
     Active Substance: PANTOPRAZOLE
     Indication: OESOPHAGEAL SPASM
     Dosage: 40 MG, 1X/DAY
     Dates: start: 201501
  6. METFORMIN [Concomitant]
     Active Substance: METFORMIN HYDROCHLORIDE
     Dosage: 1000 MG, 2X/DAY
     Route: 048
     Dates: start: 201501
  7. VILAZODONE [Concomitant]
     Active Substance: VILAZODONE
     Indication: MAJOR DEPRESSION
     Dosage: 20MG DAILY- ONE TIME DAILY
     Dates: start: 201501
  8. METOPROLOL. [Concomitant]
     Active Substance: METOPROLOL
     Indication: FAMILIAL TREMOR
     Dosage: 25MG DAILY - TWO TIMES DAILY
     Dates: start: 201501
  9. LYRICA [Suspect]
     Active Substance: PREGABALIN
     Indication: DIABETIC NEUROPATHY
     Dosage: 300 MG, DAILY (TAKE 1 CAPSULE (100 MG) BY MOUTH DAILY IN THE MORNING AND 200 MG AT HS (AT BEDTIME))
     Route: 048
     Dates: start: 20190507
  10. K DUR [Concomitant]
     Dosage: UNK
  11. OMEPRAZOLE. [Concomitant]
     Active Substance: OMEPRAZOLE
     Dosage: 20 MG, UNK
  12. METFORMIN [Concomitant]
     Active Substance: METFORMIN HYDROCHLORIDE
     Indication: TYPE 2 DIABETES MELLITUS
     Dosage: 1000 MG, 2X/DAY
     Route: 048
  13. ZOCOR [Concomitant]
     Active Substance: SIMVASTATIN
     Dosage: 20 MG, UNK
  14. BUMEX [Concomitant]
     Active Substance: BUMETANIDE
     Dosage: UNK
  15. BUMETANIDE. [Concomitant]
     Active Substance: BUMETANIDE
     Indication: LEFT VENTRICULAR FAILURE
     Dosage: 2 MG, DAILY ONLY IF NEEDED
     Dates: start: 201501

REACTIONS (6)
  - Pain in extremity [Not Recovered/Not Resolved]
  - Insomnia [Not Recovered/Not Resolved]
  - Weight decreased [Unknown]
  - Haemarthrosis [Unknown]
  - Pain [Not Recovered/Not Resolved]
  - Paraesthesia [Not Recovered/Not Resolved]

NARRATIVE: CASE EVENT DATE: 20161101
